FAERS Safety Report 19327431 (Version 5)
Quarter: 2021Q4

REPORT INFORMATION
  Report Type: Spontaneous
  Country: JM (occurrence: JM)
  Receive Date: 20210528
  Receipt Date: 20211005
  Transmission Date: 20220303
  Serious: Yes (Death, Other)
  Sender: FDA-Public Use
  Company Number: NVSC2021JM117054

PATIENT
  Age: 68 Year
  Sex: Female

DRUGS (12)
  1. METFORMIN HYDROCHLORIDE\VILDAGLIPTIN [Suspect]
     Active Substance: METFORMIN HYDROCHLORIDE\VILDAGLIPTIN
     Indication: Product used for unknown indication
     Dosage: 1 DF (50/500), BID
     Route: 065
     Dates: start: 20180511, end: 202105
  2. ROSUVASTATIN [Concomitant]
     Active Substance: ROSUVASTATIN
     Indication: Product used for unknown indication
     Dosage: UNK
     Route: 065
     Dates: end: 20190605
  3. METFORMIN [Concomitant]
     Active Substance: METFORMIN HYDROCHLORIDE
     Indication: Product used for unknown indication
     Dosage: 500 MG, TDS
     Route: 065
  4. INDAPAMIDE [Concomitant]
     Active Substance: INDAPAMIDE
     Indication: Product used for unknown indication
     Dosage: UNK
     Route: 065
  5. AMLODIPINE [Concomitant]
     Active Substance: AMLODIPINE BESYLATE
     Indication: Blood pressure measurement
     Dosage: UNK
     Route: 065
  6. SERETIDE [Concomitant]
     Active Substance: FLUTICASONE PROPIONATE\SALMETEROL XINAFOATE
     Indication: Product used for unknown indication
     Dosage: 50/250
     Route: 065
  7. VENTOLIN [Concomitant]
     Active Substance: ALBUTEROL SULFATE
     Indication: Product used for unknown indication
     Dosage: UNK
     Route: 055
  8. FLUTICASONE FUROATE [Concomitant]
     Active Substance: FLUTICASONE FUROATE
     Indication: Product used for unknown indication
     Dosage: UNK
     Route: 045
  9. LORATADINE [Concomitant]
     Active Substance: LORATADINE
     Indication: Product used for unknown indication
     Dosage: UNK
     Route: 065
  10. AUGMENTIN [Concomitant]
     Active Substance: AMOXICILLIN\CLAVULANATE POTASSIUM
     Indication: Product used for unknown indication
     Dosage: 1 G, BID
     Route: 065
  11. ARISTOBET N [Concomitant]
     Indication: Product used for unknown indication
     Dosage: UNK
     Route: 045
  12. DIABION [Concomitant]
     Indication: Product used for unknown indication
     Dosage: UNK
     Route: 065

REACTIONS (22)
  - Breast cancer metastatic [Fatal]
  - Diabetes mellitus [Fatal]
  - Asthma [Fatal]
  - Hypertension [Fatal]
  - Blood pressure increased [Unknown]
  - Metastases to liver [Unknown]
  - Breast mass [Unknown]
  - Fear [Unknown]
  - Pain in extremity [Unknown]
  - Sinus disorder [Unknown]
  - Cough [Unknown]
  - Chromaturia [Unknown]
  - Dehydration [Unknown]
  - Dyspnoea [Unknown]
  - Condition aggravated [Unknown]
  - Pain [Unknown]
  - Eating disorder [Unknown]
  - Speech disorder [Unknown]
  - Blood creatine phosphokinase increased [Unknown]
  - Heart rate increased [Unknown]
  - Ocular icterus [Unknown]
  - Gastrointestinal disorder [Unknown]

NARRATIVE: CASE EVENT DATE: 20191022
